FAERS Safety Report 23011078 (Version 7)
Quarter: 2024Q4

REPORT INFORMATION
  Report Type: Spontaneous
  Country: AU (occurrence: AU)
  Receive Date: 20230929
  Receipt Date: 20241219
  Transmission Date: 20250115
  Serious: Yes (Hospitalization, Other)
  Sender: NOVARTIS
  Company Number: AU-SANDOZ-SDZ2023AU032261

PATIENT
  Age: 6 Decade
  Sex: Female

DRUGS (7)
  1. ROSUVASTATIN [Interacting]
     Active Substance: ROSUVASTATIN
     Indication: Cerebrovascular accident
     Dosage: 10 MG, QD
     Route: 065
  2. RIBOCICLIB [Interacting]
     Active Substance: RIBOCICLIB
     Indication: Hormone receptor positive breast cancer
     Dosage: 200 MG 3 WEEKS ON 1 WEEK OFF
     Route: 048
  3. IRBESARTAN AN [Concomitant]
     Indication: Product used for unknown indication
     Dosage: 75 MG, QD
     Route: 065
  4. ESOMEPRAZOLE [Concomitant]
     Active Substance: ESOMEPRAZOLE
     Indication: Product used for unknown indication
     Dosage: 20 MG, BID
     Route: 065
  5. ESCITALOPRAM [Concomitant]
     Active Substance: ESCITALOPRAM OXALATE
     Indication: Product used for unknown indication
     Dosage: 10 MG, QD
     Route: 065
  6. PREGABALIN [Concomitant]
     Active Substance: PREGABALIN
     Indication: Product used for unknown indication
     Dosage: 150 MG, QD
     Route: 065
  7. ANASTROZOLE [Concomitant]
     Active Substance: ANASTROZOLE
     Indication: Product used for unknown indication
     Dosage: 1 MG, QD (A COMBINATION WHICH A PATIENT HAD BEEN TAKING FOR 4 YEARS)
     Route: 065

REACTIONS (7)
  - Rhabdomyolysis [Unknown]
  - Chromaturia [Unknown]
  - Disorientation [Unknown]
  - Muscle twitching [Unknown]
  - Pyrexia [Unknown]
  - Drug interaction [Unknown]
  - Product use in unapproved indication [Unknown]
